FAERS Safety Report 5347918-3 (Version None)
Quarter: 2007Q2

REPORT INFORMATION
  Report Type: 
  Country: None (occurrence: None)
  Receive Date: 20070606
  Receipt Date: 20070601
  Transmission Date: 20071010
  Serious: Yes (Hospitalization)
  Sender: FDA-Public Use
  Company Number: A0653806A

PATIENT
  Age: 65 Year
  Sex: Female

DRUGS (10)
  1. AVANDAMET [Suspect]
     Dosage: 1TAB TWICE PER DAY
     Route: 048
  2. PROTONIX [Concomitant]
  3. GLYBURIDE [Concomitant]
  4. JANUVIA [Concomitant]
  5. TRICOR [Concomitant]
  6. ZETIA [Concomitant]
  7. CRESTOR [Concomitant]
  8. TOPROL-XL [Concomitant]
  9. AVALIDE [Concomitant]
  10. ASPIRIN [Concomitant]

REACTIONS (1)
  - MYOCARDIAL INFARCTION [None]
